FAERS Safety Report 22099540 (Version 1)
Quarter: 2023Q1

REPORT INFORMATION
  Report Type: Spontaneous
  Country: US (occurrence: US)
  Receive Date: 20230315
  Receipt Date: 20230315
  Transmission Date: 20230417
  Serious: Yes (Other)
  Sender: FDA-Public Use
  Company Number: US-PFIZER INC-PV202300046973

PATIENT

DRUGS (1)
  1. SULFASALAZINE [Suspect]
     Active Substance: SULFASALAZINE
     Indication: Epstein-Barr virus infection
     Dosage: UNK

REACTIONS (3)
  - Hepatic failure [Unknown]
  - Plasmacytosis [Unknown]
  - Drug hypersensitivity [Unknown]
